FAERS Safety Report 5045770-7 (Version None)
Quarter: 2006Q2

REPORT INFORMATION
  Report Type: 
  Country: None (occurrence: None)
  Receive Date: 20060601
  Receipt Date: 20060427
  Transmission Date: 20061013
  Serious: No
  Sender: FDA-Public Use
  Company Number: 2006-BP-04777BP

PATIENT
  Age: 77 Year
  Sex: Female

DRUGS (5)
  1. SPIRIVA [Suspect]
     Indication: EMPHYSEMA
     Dosage: 18 MCG (18 MCG, 1 IN 1 D), IH
     Route: 055
     Dates: start: 20051001
  2. SYNTHROID [Concomitant]
  3. ASPIRIN [Concomitant]
  4. LIPITOR [Concomitant]
  5. DIOVAN [Concomitant]

REACTIONS (1)
  - VAGINAL DISCHARGE [None]
